FAERS Safety Report 4723987-6 (Version None)
Quarter: 2005Q3

REPORT INFORMATION
  Report Type: 
  Country: None (occurrence: None)
  Receive Date: 20050721
  Receipt Date: 20050705
  Transmission Date: 20060218
  Serious: Yes (Hospitalization)
  Sender: FDA-Public Use
  Company Number: DSA_26737_2005

PATIENT
  Age: 56 Year
  Sex: Male

DRUGS (13)
  1. ATIVAN [Suspect]
     Dosage: DF
  2. KEPPRA [Concomitant]
  3. SEROQUEL [Concomitant]
  4. DILANTIN [Concomitant]
  5. EFFEXOR [Concomitant]
  6. ZANTAC [Concomitant]
  7. RISPERDAL [Concomitant]
  8. BACLOFEN [Concomitant]
  9. ATACAND [Concomitant]
  10. DITROPAN XL [Concomitant]
  11. DECADRON [Concomitant]
  12. STUDY DRUG (IL13-PE38QQR) [Concomitant]
  13. GLIADEL [Concomitant]

REACTIONS (5)
  - CEREBRAL VENTRICLE DILATATION [None]
  - DEPRESSED LEVEL OF CONSCIOUSNESS [None]
  - SOMNOLENCE [None]
  - URINARY TRACT INFECTION [None]
  - WHITE BLOOD CELL COUNT INCREASED [None]
